FAERS Safety Report 14222211 (Version 1)
Quarter: 2017Q4

REPORT INFORMATION
  Report Type: Spontaneous
  Country: FR (occurrence: FR)
  Receive Date: 20171124
  Receipt Date: 20171124
  Transmission Date: 20180321
  Serious: Yes (Hospitalization)
  Sender: FDA-Public Use
  Company Number: FR-ROCHE-2026997

PATIENT
  Age: 62 Year
  Sex: Female

DRUGS (8)
  1. CLOMIPRAMINE HYDROCHLORIDE. [Suspect]
     Active Substance: CLOMIPRAMINE HYDROCHLORIDE
     Indication: DEPRESSION
     Route: 048
     Dates: start: 201710, end: 20171102
  2. STAGID [Concomitant]
     Active Substance: METFORMIN PAMOATE
     Route: 065
  3. TERCIAN [Concomitant]
     Active Substance: CYAMEMAZINE
  4. VALIUM [Suspect]
     Active Substance: DIAZEPAM
     Indication: ANXIETY
     Route: 048
     Dates: start: 201710, end: 20171102
  5. SERTRALINE [Suspect]
     Active Substance: SERTRALINE HYDROCHLORIDE
     Indication: DEPRESSION
     Route: 048
     Dates: start: 201710, end: 20171102
  6. LASILIX [Concomitant]
     Active Substance: FUROSEMIDE
     Route: 065
  7. ISOPTINE [Concomitant]
     Active Substance: VERAPAMIL HYDROCHLORIDE
     Route: 065
  8. ARIXTRA [Concomitant]
     Active Substance: FONDAPARINUX SODIUM
     Route: 065

REACTIONS (1)
  - Mania [Recovered/Resolved]

NARRATIVE: CASE EVENT DATE: 20171031
